FAERS Safety Report 11241855 (Version 3)
Quarter: 2015Q3

REPORT INFORMATION
  Report Type: Spontaneous
  Country: JP (occurrence: JP)
  Receive Date: 20150706
  Receipt Date: 20150903
  Transmission Date: 20151125
  Serious: Yes (Life-Threatening, Hospitalization)
  Sender: FDA-Public Use
  Company Number: JP-SHIONOGI, INC-2015000189

PATIENT
  Age: 56 Year
  Sex: Male
  Weight: 57 kg

DRUGS (48)
  1. PINASION [Concomitant]
     Dosage: 20 MG, QD
     Route: 048
     Dates: start: 20150205
  2. ENDOXAN                            /00021101/ [Suspect]
     Active Substance: CYCLOPHOSPHAMIDE
     Indication: ADULT T-CELL LYMPHOMA/LEUKAEMIA
     Dosage: UNK
     Route: 042
     Dates: start: 20141216
  3. FILGRASTIM [Concomitant]
     Active Substance: FILGRASTIM
     Indication: ADULT T-CELL LYMPHOMA/LEUKAEMIA
  4. CALONAL [Concomitant]
     Active Substance: ACETAMINOPHEN
     Indication: PYREXIA
     Dosage: 400 MG, PRN
     Route: 048
     Dates: start: 20150126
  5. PICOSULFATE DE SODIUM [Concomitant]
     Indication: CONSTIPATION
     Dosage: 15 GTT, QD
     Route: 048
     Dates: start: 20150127
  6. DAIKENCHUTO [Concomitant]
     Active Substance: HERBALS
     Indication: ABDOMINAL DISCOMFORT
     Dosage: 2.5 G, TID
     Route: 048
     Dates: start: 20150205
  7. LANSOPRAZOLE. [Concomitant]
     Active Substance: LANSOPRAZOLE
     Indication: CONSTIPATION
     Dosage: 15 MG, QD
     Route: 048
     Dates: start: 20150129
  8. FUROSEMIDE. [Concomitant]
     Active Substance: FUROSEMIDE
     Indication: OEDEMA
     Dosage: 20 MG, QD
     Route: 048
     Dates: start: 20150206
  9. SPIRONOLACTONE. [Concomitant]
     Active Substance: SPIRONOLACTONE
     Indication: ELECTROLYTE IMBALANCE
  10. MOSAPRIDE CITRATE [Concomitant]
     Active Substance: MOSAPRIDE CITRATE
     Indication: CONSTIPATION
     Dosage: 5 MG, TID
     Route: 048
     Dates: start: 20150129
  11. BACTRAMIN [Concomitant]
     Active Substance: SULFAMETHOXAZOLE\TRIMETHOPRIM
     Dosage: 2 DF, QD
     Route: 048
     Dates: start: 20150129
  12. FEBURIC [Concomitant]
     Active Substance: FEBUXOSTAT
     Indication: HYPERURICAEMIA
     Dosage: 10 MG, QD
     Route: 048
     Dates: start: 20150129
  13. SELSPOT [Concomitant]
     Indication: PAIN
     Dosage: UNK
     Route: 065
     Dates: start: 20150307
  14. TEPRENONE [Concomitant]
     Active Substance: TEPRENONE
     Dosage: 50 MG, PRN
     Route: 048
     Dates: start: 20150205
  15. RANIMUSTINE [Concomitant]
     Active Substance: RANIMUSTINE
     Dosage: UNK
     Route: 065
     Dates: start: 20141216
  16. CYTARABINE. [Concomitant]
     Active Substance: CYTARABINE
     Dosage: UNK
     Route: 065
     Dates: start: 20141216
  17. FILGRASTIM [Concomitant]
     Active Substance: FILGRASTIM
     Indication: NEUTROPHIL COUNT DECREASED
     Dosage: 300 ?G, QD
     Route: 041
     Dates: start: 20141118
  18. CANCIDAS [Concomitant]
     Active Substance: CASPOFUNGIN ACETATE
     Indication: ASPERGILLOMA
     Dosage: 50 MG, QD
     Route: 041
     Dates: start: 20141118
  19. DAIKENCHUTO [Concomitant]
     Active Substance: HERBALS
     Indication: CONSTIPATION
     Dosage: 2.5 G, TID
     Route: 048
     Dates: start: 20150129
  20. MOSAPRIDE CITRATE [Concomitant]
     Active Substance: MOSAPRIDE CITRATE
     Indication: ABDOMINAL DISCOMFORT
     Dosage: 5 MG, TID
     Route: 048
     Dates: start: 20150205
  21. GASCON [Concomitant]
     Active Substance: DIMETHICONE
     Indication: CONSTIPATION
     Dosage: 40 MG, TID
     Route: 048
     Dates: start: 20150129
  22. GASCON [Concomitant]
     Active Substance: DIMETHICONE
     Indication: ABDOMINAL DISCOMFORT
     Dosage: 40 MG, TID
     Route: 048
     Dates: start: 20150205
  23. LANSOPRAZOLE. [Concomitant]
     Active Substance: LANSOPRAZOLE
     Indication: ABDOMINAL DISCOMFORT
     Dosage: 15 MG, QD
     Route: 048
     Dates: start: 20150205
  24. FEBURIC [Concomitant]
     Active Substance: FEBUXOSTAT
     Dosage: 10 MG, QD
     Route: 048
     Dates: start: 20150205
  25. VINDESINE SULFATE [Concomitant]
     Active Substance: VINDESINE SULFATE
     Dosage: UNK
     Route: 065
     Dates: start: 20141216
  26. METHOTREXATE [Concomitant]
     Active Substance: METHOTREXATE
     Dosage: UNK
     Route: 065
     Dates: start: 20141216
  27. CMZ [Concomitant]
     Indication: FEBRILE NEUTROPENIA
     Dosage: 2 G, QD
     Route: 065
     Dates: start: 20150118
  28. VINCRISTINE SULFATE. [Suspect]
     Active Substance: VINCRISTINE SULFATE
     Indication: ADULT T-CELL LYMPHOMA/LEUKAEMIA
     Dosage: UNK
     Route: 042
     Dates: start: 20141216
  29. MIYA-BM [Concomitant]
     Active Substance: CLOSTRIDIUM BUTYRICUM SPORES STRAIN M-55
     Indication: ABDOMINAL DISCOMFORT
     Dosage: 1 G, TID
     Route: 048
     Dates: start: 20150205
  30. BACTRAMIN [Concomitant]
     Active Substance: SULFAMETHOXAZOLE\TRIMETHOPRIM
     Dosage: 2 DF, QD
     Route: 048
     Dates: start: 20150205
  31. LOXOMARIN [Concomitant]
     Active Substance: LOXOPROFEN
     Indication: PYREXIA
     Dosage: 60 MG, PRN
     Route: 048
     Dates: start: 20150205
  32. FINIBAX [Suspect]
     Active Substance: DORIPENEM MONOHYDRATE
     Indication: FEBRILE NEUTROPENIA
     Dosage: 0.25 G, TID
     Route: 041
     Dates: start: 20150203, end: 20150208
  33. DOXORUBICIN HYDROCHLORIDE. [Suspect]
     Active Substance: DOXORUBICIN HYDROCHLORIDE
     Indication: ADULT T-CELL LYMPHOMA/LEUKAEMIA
     Dosage: UNK
     Route: 042
     Dates: start: 20141216
  34. EMEND [Concomitant]
     Active Substance: APREPITANT
     Dosage: 1 DF, QD
     Route: 048
     Dates: start: 20150129
  35. LOXOMARIN [Concomitant]
     Active Substance: LOXOPROFEN
     Indication: PAIN
  36. SPIRONOLACTONE. [Concomitant]
     Active Substance: SPIRONOLACTONE
     Indication: OEDEMA
     Dosage: 12.5 MG, QD
     Route: 048
     Dates: start: 20150206
  37. MEROPENEM                          /01250502/ [Concomitant]
     Active Substance: MEROPENEM
     Indication: FEBRILE NEUTROPENIA
     Dosage: 1 G, QD
     Route: 065
     Dates: start: 20150125
  38. PREDNISOLONE. [Suspect]
     Active Substance: PREDNISOLONE
     Indication: ADULT T-CELL LYMPHOMA/LEUKAEMIA
     Dosage: UNK
     Route: 048
     Dates: start: 20141216
  39. SELSPOT [Concomitant]
     Indication: PYREXIA
     Dosage: UNK
     Route: 065
     Dates: start: 20150205
  40. CARBOPLATIN. [Concomitant]
     Active Substance: CARBOPLATIN
     Dosage: UNK
     Route: 065
     Dates: start: 20141216
  41. CANCIDAS [Concomitant]
     Active Substance: CASPOFUNGIN ACETATE
     Indication: ADULT T-CELL LYMPHOMA/LEUKAEMIA
  42. CALONAL [Concomitant]
     Active Substance: ACETAMINOPHEN
     Indication: PAIN
     Dosage: 400 MG, PRN
     Route: 048
     Dates: start: 20150203
  43. PICOSULFATE DE SODIUM [Concomitant]
     Indication: ABDOMINAL DISCOMFORT
  44. PREDNISOLONE. [Concomitant]
     Active Substance: PREDNISOLONE
     Dosage: 30 MG, QD
     Route: 048
     Dates: start: 20150129
  45. MIYA-BM [Concomitant]
     Active Substance: CLOSTRIDIUM BUTYRICUM SPORES STRAIN M-55
     Indication: CONSTIPATION
     Dosage: 1 G, TID
     Route: 048
     Dates: start: 20150130
  46. FUROSEMIDE. [Concomitant]
     Active Substance: FUROSEMIDE
     Indication: ELECTROLYTE IMBALANCE
  47. ETOPOSIDE. [Concomitant]
     Active Substance: ETOPOSIDE
     Dosage: UNK
     Route: 065
     Dates: start: 20141216
  48. CTRX [Concomitant]
     Indication: FEBRILE NEUTROPENIA
     Dosage: 2 G, QD
     Route: 065
     Dates: start: 20150122

REACTIONS (3)
  - Seizure [Recovered/Resolved with Sequelae]
  - Bone marrow failure [Unknown]
  - Neutrophil count decreased [Unknown]

NARRATIVE: CASE EVENT DATE: 20150208
